FAERS Safety Report 9737032 (Version 2)
Quarter: 2013Q4

REPORT INFORMATION
  Report Type: Spontaneous
  Country: US (occurrence: US)
  Receive Date: 20131206
  Receipt Date: 20131206
  Transmission Date: 20140711
  Serious: Yes (Other)
  Sender: FDA-Public Use
  Company Number: US-GILEAD-2009-0024175

PATIENT
  Age: 61 Year
  Sex: Male

DRUGS (14)
  1. LETAIRIS [Suspect]
     Indication: PULMONARY ARTERIAL HYPERTENSION
  2. ALTACE [Concomitant]
  3. MECLIZINE [Concomitant]
  4. FUROSEMIDE [Concomitant]
  5. CRESTOR [Concomitant]
  6. PLAVIX [Concomitant]
  7. SPIRIVA [Concomitant]
  8. LEVOTHYROXINE [Concomitant]
  9. ALLOPURINOL [Concomitant]
  10. COLCHICINE [Concomitant]
  11. ASPIRIN [Concomitant]
  12. NEXIUM [Concomitant]
  13. IRON [Concomitant]
  14. KLOR-CON [Concomitant]

REACTIONS (3)
  - Drug ineffective [Unknown]
  - Fall [Unknown]
  - Dizziness [Unknown]
